FAERS Safety Report 24800880 (Version 1)
Quarter: 2025Q1

REPORT INFORMATION
  Report Type: Spontaneous
  Country: US (occurrence: US)
  Receive Date: 20250102
  Receipt Date: 20250102
  Transmission Date: 20250409
  Serious: No
  Sender: MYLAN
  Company Number: US-MYLANLABS-2024M1112430

PATIENT
  Sex: Female
  Weight: 91.17 kg

DRUGS (3)
  1. LATANOPROST [Suspect]
     Active Substance: LATANOPROST
     Indication: Product used for unknown indication
     Route: 047
  2. AMBRISENTAN [Concomitant]
     Active Substance: AMBRISENTAN
     Route: 065
  3. DORZOLAMIDE\TIMOLOL [Concomitant]
     Active Substance: DORZOLAMIDE\TIMOLOL
     Route: 065

REACTIONS (3)
  - Alopecia [Not Recovered/Not Resolved]
  - Madarosis [Unknown]
  - Product lot number issue [Unknown]
